FAERS Safety Report 10986292 (Version 1)
Quarter: 2015Q2

REPORT INFORMATION
  Report Type: Spontaneous
  Country: US (occurrence: None)
  Receive Date: 20150403
  Receipt Date: 20150403
  Transmission Date: 20150821
  Serious: Yes (Life-Threatening, Hospitalization, Disabling)
  Sender: FDA-Public Use
  Company Number: None

PATIENT
  Age: 84 Year
  Sex: Female
  Weight: 61.24 kg

DRUGS (4)
  1. SEROQUEL [Suspect]
     Active Substance: QUETIAPINE FUMARATE
     Indication: DEMENTIA
     Dosage: 1 MORNING 2 EVENING TWICE DAILY TAKEN BY MOUTH
     Route: 048
  2. BLOOD PRESSURE MEDS [Concomitant]
  3. SEROQUEL [Suspect]
     Active Substance: QUETIAPINE FUMARATE
     Indication: AGGRESSION
     Dosage: 1 MORNING 2 EVENING TWICE DAILY TAKEN BY MOUTH
     Route: 048
  4. DIABETES MEDS [Concomitant]

REACTIONS (6)
  - Altered state of consciousness [None]
  - Tremor [None]
  - Emotional disorder [None]
  - Overdose [None]
  - Hallucination, visual [None]
  - Blood magnesium decreased [None]

NARRATIVE: CASE EVENT DATE: 20150401
